FAERS Safety Report 18165202 (Version 4)
Quarter: 2020Q4

REPORT INFORMATION
  Report Type: Report from Study
  Country: None (occurrence: US)
  Receive Date: 20200819
  Receipt Date: 20201005
  Transmission Date: 20210113
  Serious: Yes (Other)
  Sender: FDA-Public Use
  Company Number: US-ABBVIE-20K-163-3492814-00

PATIENT
  Age: 38 Year
  Sex: Male

DRUGS (2)
  1. HUMIRA [Suspect]
     Active Substance: ADALIMUMAB
     Indication: COLITIS ULCERATIVE
     Route: 058
     Dates: start: 2020
  2. HUMIRA [Suspect]
     Active Substance: ADALIMUMAB
     Indication: CROHN^S DISEASE
     Route: 058
     Dates: start: 202003, end: 2020

REACTIONS (25)
  - Off label use [Unknown]
  - Mobility decreased [Unknown]
  - General physical health deterioration [Unknown]
  - Clostridium difficile infection [Unknown]
  - Device issue [Not Recovered/Not Resolved]
  - Nervousness [Unknown]
  - Eye disorder [Not Recovered/Not Resolved]
  - Impatience [Recovering/Resolving]
  - Anal incontinence [Not Recovered/Not Resolved]
  - Nephrolithiasis [Unknown]
  - Insomnia [Unknown]
  - Depressed mood [Not Recovered/Not Resolved]
  - Irritability [Recovering/Resolving]
  - Glaucoma [Unknown]
  - Nausea [Not Recovered/Not Resolved]
  - Irritable bowel syndrome [Not Recovered/Not Resolved]
  - Sleep disorder [Recovering/Resolving]
  - Anxiety [Recovering/Resolving]
  - Depressed mood [Recovering/Resolving]
  - Gastrointestinal pain [Not Recovered/Not Resolved]
  - Emotional distress [Unknown]
  - Stress [Recovering/Resolving]
  - Colitis ulcerative [Recovering/Resolving]
  - Blindness [Not Recovered/Not Resolved]
  - Colitis [Recovering/Resolving]

NARRATIVE: CASE EVENT DATE: 2020
